FAERS Safety Report 23062883 (Version 2)
Quarter: 2024Q2

REPORT INFORMATION
  Report Type: Report from Study
  Country: US (occurrence: US)
  Receive Date: 20231013
  Receipt Date: 20240618
  Transmission Date: 20240716
  Serious: Yes (Other)
  Sender: FDA-Public Use
  Company Number: US-ABBVIE-5448346

PATIENT
  Sex: Female

DRUGS (1)
  1. RESTASIS [Suspect]
     Active Substance: CYCLOSPORINE
     Indication: Product used for unknown indication
     Dosage: FORM STRENGTH 0.5 MILLIGRAM/MILLILITERS (CYCLOSPORINE 0.5MG/ML EML)
     Route: 047

REACTIONS (2)
  - Surgery [Unknown]
  - Slow speech [Unknown]
